FAERS Safety Report 8845437 (Version 2)
Quarter: 2012Q4

REPORT INFORMATION
  Report Type: 
  Country: US (occurrence: US)
  Receive Date: 20121017
  Receipt Date: 20121108
  Transmission Date: 20130627
  Serious: No
  Sender: FDA-Public Use
  Company Number: US-PFIZER INC-2012257850

PATIENT
  Age: 77 Year
  Sex: Female
  Weight: 72.11 kg

DRUGS (9)
  1. ATORVASTATIN CALCIUM [Suspect]
     Indication: CHOLESTEROL HIGH
     Dosage: 20 mg, daily
     Dates: start: 20120314
  2. ATORVASTATIN CALCIUM [Interacting]
     Dosage: 40 mg, daily
     Dates: start: 2012, end: 20120905
  3. CALCIUM CARBONATE [Interacting]
     Dosage: 2 DF, daily
     Dates: end: 20121003
  4. LIPITOR [Suspect]
     Indication: HYPERTENSION
     Dosage: 40 mg, 1x/day (QD)
     Route: 048
     Dates: start: 20120229
  5. ATENOLOL [Concomitant]
     Indication: BLOOD PRESSURE HIGH
     Dosage: 25 mg, daily
  6. HYDROCHLOROTHIAZIDE [Concomitant]
     Indication: BLOOD PRESSURE HIGH
     Dosage: 25 mg, daily
  7. WARFARIN [Concomitant]
     Indication: BLOOD PRESSURE HIGH
     Dosage: 2.5mg daily for 3 days in a week and at 5mg daily for 4 days in a week
  8. AMLODIPINE [Concomitant]
     Indication: BLOOD PRESSURE HIGH
     Dosage: ^5/20^ mg daily
  9. FLECAINIDE ACETATE [Concomitant]
     Indication: ATRIAL FIBRILLATION
     Dosage: 50 mg, 3x/day

REACTIONS (3)
  - Drug interaction [Unknown]
  - Limb discomfort [Recovering/Resolving]
  - Pain in extremity [Recovered/Resolved]
